FAERS Safety Report 4993908-X (Version None)
Quarter: 2006Q2

REPORT INFORMATION
  Report Type: 
  Country: None (occurrence: None)
  Receive Date: 20060503
  Receipt Date: 20060418
  Transmission Date: 20061013
  Serious: Yes (Hospitalization)
  Sender: FDA-Public Use
  Company Number: MEDI-004206

PATIENT
  Age: 10 Month
  Sex: Female
  Weight: 8.8 kg

DRUGS (1)
  1. SYNAGIS [Suspect]
     Indication: ANTIVIRAL PROPHYLAXIS
     Dosage: 129 MG, 1 IN 30 D, INTRAMUSCULAR
     Route: 030
     Dates: start: 20051027, end: 20051027

REACTIONS (1)
  - KAWASAKI'S DISEASE [None]
